FAERS Safety Report 8081464-1 (Version None)
Quarter: 2012Q1

REPORT INFORMATION
  Report Type: 
  Country: None (occurrence: None)
  Receive Date: 20120130
  Receipt Date: 20120124
  Transmission Date: 20120608
  Serious: Yes (Disabling, Other)
  Sender: FDA-Public Use
  Company Number: US-PFIZER INC-2012020572

PATIENT
  Sex: Female
  Weight: 99.8 kg

DRUGS (10)
  1. VICODIN [Concomitant]
     Indication: PAIN
     Dosage: UNK, AS NEEDED
  2. PRISTIQ [Suspect]
     Indication: DEPRESSION
     Dosage: UNK
     Dates: start: 20080101
  3. ACETYLSALICYLIC ACID [Concomitant]
     Dosage: 81 MG, DAILY
  4. TOPAMAX [Concomitant]
     Dosage: UNK
  5. NEURONTIN [Suspect]
     Indication: NEUROPATHY PERIPHERAL
     Dosage: UNK
  6. MOBIC [Concomitant]
     Indication: INFLAMMATION
     Dosage: 15 MG, DAILY
  7. LAMICTAL [Concomitant]
     Indication: AFFECTIVE DISORDER
     Dosage: 100 MG, DAILY
  8. VALTREX [Concomitant]
     Indication: SKIN DISORDER
     Dosage: UNK
  9. PRAVASTATIN [Concomitant]
     Indication: BLOOD CHOLESTEROL INCREASED
     Dosage: 120 MG, DAILY
  10. GLUCOPHAGE [Concomitant]
     Indication: DIABETES MELLITUS
     Dosage: 500 MG, DAILY

REACTIONS (5)
  - ROAD TRAFFIC ACCIDENT [None]
  - SPINAL FRACTURE [None]
  - MEMORY IMPAIRMENT [None]
  - LOWER LIMB FRACTURE [None]
  - SPINAL DISORDER [None]
